FAERS Safety Report 10101923 (Version 2)
Quarter: 2014Q2

REPORT INFORMATION
  Report Type: Report from Study
  Country: US (occurrence: US)
  Receive Date: 20140424
  Receipt Date: 20140506
  Transmission Date: 20141212
  Serious: Yes (Death, Other)
  Sender: FDA-Public Use
  Company Number: PHEH2014US008066

PATIENT
  Sex: Female
  Weight: 53.6 kg

DRUGS (1)
  1. AFINITOR [Suspect]
     Indication: BREAST CANCER METASTATIC
     Dosage: 10 MG, QD
     Route: 048

REACTIONS (7)
  - Multi-organ failure [Fatal]
  - Pulseless electrical activity [Fatal]
  - Ischaemic hepatitis [Unknown]
  - Metabolic acidosis [Unknown]
  - Cardio-respiratory arrest [Unknown]
  - Renal failure acute [Unknown]
  - Pancytopenia [Unknown]
